FAERS Safety Report 6376381-9 (Version None)
Quarter: 2009Q3

REPORT INFORMATION
  Report Type: 
  Country: None (occurrence: None)
  Receive Date: 20090918
  Receipt Date: 20090904
  Transmission Date: 20100115
  Serious: Yes (Hospitalization)
  Sender: FDA-Public Use
  Company Number: 1000008836

PATIENT
  Age: 61 Year
  Sex: Female
  Weight: 40 kg

DRUGS (4)
  1. ESCITALOPRAM [Suspect]
     Indication: DEPRESSION
     Dosage: 10 MG (10 MG, 1 IN 1 D), ORAL
     Route: 048
     Dates: start: 20090801
  2. ATACAND [Concomitant]
  3. FOSAVANCE [Concomitant]
  4. NOCTAMIDE [Concomitant]

REACTIONS (8)
  - BLOOD SODIUM DECREASED [None]
  - CONFUSIONAL STATE [None]
  - EATING DISORDER [None]
  - ELECTROCARDIOGRAM REPOLARISATION ABNORMALITY [None]
  - HYPONATRAEMIA [None]
  - SOMNOLENCE [None]
  - STATUS EPILEPTICUS [None]
  - TACHYCARDIA [None]
